FAERS Safety Report 6622546-8 (Version None)
Quarter: 2010Q1

REPORT INFORMATION
  Report Type: 
  Country: None (occurrence: None)
  Receive Date: 20100310
  Receipt Date: 20100112
  Transmission Date: 20100710
  Serious: No
  Sender: FDA-Public Use
  Company Number: US-BIOGENIDEC-2010BI001090

PATIENT
  Age: 49 Year
  Sex: Male

DRUGS (4)
  1. AVONEX [Suspect]
     Indication: MULTIPLE SCLEROSIS
     Route: 030
     Dates: start: 19970301, end: 20030101
  2. AVONEX [Suspect]
     Route: 030
     Dates: start: 20030101, end: 20030101
  3. AVONEX [Suspect]
     Route: 030
     Dates: start: 20030101
  4. COPAXONE [Concomitant]
     Indication: MULTIPLE SCLEROSIS
     Dates: start: 20090201

REACTIONS (7)
  - BALANCE DISORDER [None]
  - FEELING ABNORMAL [None]
  - GAIT DISTURBANCE [None]
  - INJECTION SITE PAIN [None]
  - MUSCULAR WEAKNESS [None]
  - NAUSEA [None]
  - POSTURE ABNORMAL [None]
